FAERS Safety Report 5611076-8 (Version None)
Quarter: 2008Q1

REPORT INFORMATION
  Report Type: 
  Country: None (occurrence: None)
  Receive Date: 20080129
  Receipt Date: 20080118
  Transmission Date: 20080703
  Serious: Yes (Life-Threatening)
  Sender: FDA-Public Use
  Company Number: 06H-163-0311577-00

PATIENT
  Sex: Male

DRUGS (2)
  1. PRECEDEX [Suspect]
     Indication: SEDATION
     Dosage: CONTINUOUS, INTRAVENOUS; CONTINUOUS, 1MG/MIN., INTRAVENOUS
     Route: 042
     Dates: start: 20061201, end: 20061201
  2. PRECEDEX [Suspect]
     Indication: SEDATION
     Dosage: CONTINUOUS, INTRAVENOUS; CONTINUOUS, 1MG/MIN., INTRAVENOUS
     Route: 042
     Dates: start: 20061201, end: 20061201

REACTIONS (5)
  - BRADYCARDIA [None]
  - HYPOTENSION [None]
  - RESTLESSNESS [None]
  - VENTRICULAR EXTRASYSTOLES [None]
  - VENTRICULAR TACHYCARDIA [None]
